FAERS Safety Report 17964757 (Version 1)
Quarter: 2020Q2

REPORT INFORMATION
  Report Type: Spontaneous
  Country: US (occurrence: US)
  Receive Date: 20200630
  Receipt Date: 20200630
  Transmission Date: 20200714
  Serious: Yes (Life-Threatening, Hospitalization, Other)
  Sender: FDA-Public Use
  Company Number: US-NAPPMUNDI-USA-2020-0154612

PATIENT
  Age: 67 Year
  Sex: Male

DRUGS (1)
  1. OXYCODONE HCL TABLETS (RHODES 91-490) [Suspect]
     Active Substance: OXYCODONE HYDROCHLORIDE
     Route: 048

REACTIONS (8)
  - Myocardial infarction [Unknown]
  - Orthostatic hypotension [Unknown]
  - Abdominal discomfort [Unknown]
  - Hypertension [Unknown]
  - Head injury [Unknown]
  - Poisoning [Unknown]
  - Near death experience [Unknown]
  - Brain operation [Unknown]
